FAERS Safety Report 5017597-3 (Version None)
Quarter: 2006Q2

REPORT INFORMATION
  Report Type: 
  Country: None (occurrence: None)
  Receive Date: 20060525
  Receipt Date: 20060519
  Transmission Date: 20061013
  Serious: Yes (Disabling)
  Sender: FDA-Public Use
  Company Number: OMPQ-PR-0603S-0184

PATIENT
  Age: 34 Year
  Sex: Male
  Weight: 98.4306 kg

DRUGS (2)
  1. OMNIPAQUE 140 [Suspect]
     Indication: DIARRHOEA
     Dosage: 50 ML, SINGLE DOSE, EXTRAVASATION
     Dates: start: 20060221, end: 20060221
  2. FLUOXETINE [Concomitant]

REACTIONS (3)
  - COMPLEX REGIONAL PAIN SYNDROME [None]
  - CYANOSIS [None]
  - INJECTION SITE EXTRAVASATION [None]
